FAERS Safety Report 6315854-1 (Version None)
Quarter: 2009Q3

REPORT INFORMATION
  Report Type: 
  Country: None (occurrence: None)
  Receive Date: 20090818
  Receipt Date: 20090811
  Transmission Date: 20100115
  Serious: Yes (Hospitalization, Other)
  Sender: FDA-Public Use
  Company Number: CHPA2009US16929

PATIENT
  Age: 72 Year
  Sex: Female
  Weight: 66.7 kg

DRUGS (3)
  1. BENEFIBER W/WHEAT DEXTRIN (NCH)  (WHEAT DEXTRIN) POWDER [Suspect]
     Indication: NUTRITIONAL SUPPORT
     Dosage: 2 TSP, ONCE/SINGLE, ORAL; 2 TSP, ONCE/SINGLE, ORAL
     Route: 048
     Dates: start: 20090731, end: 20090731
  2. BENEFIBER W/WHEAT DEXTRIN (NCH)  (WHEAT DEXTRIN) POWDER [Suspect]
     Indication: NUTRITIONAL SUPPORT
     Dosage: 2 TSP, ONCE/SINGLE, ORAL; 2 TSP, ONCE/SINGLE, ORAL
     Route: 048
     Dates: start: 20090810, end: 20090810
  3. KEFLEX /UNK/ (CEFALEXIN MONHOHYDRATE) [Concomitant]

REACTIONS (8)
  - ABDOMINAL DISCOMFORT [None]
  - BURNING SENSATION [None]
  - DIZZINESS [None]
  - DRY MOUTH [None]
  - DYSPEPSIA [None]
  - GASTROINTESTINAL DISORDER [None]
  - HEADACHE [None]
  - NASAL DRYNESS [None]
